FAERS Safety Report 4943953-5 (Version None)
Quarter: 2006Q1

REPORT INFORMATION
  Report Type: 
  Country: None (occurrence: None)
  Receive Date: 20060313
  Receipt Date: 20060313
  Transmission Date: 20060701
  Serious: Yes (Death, Life-Threatening)
  Sender: FDA-Public Use
  Company Number: None

PATIENT
  Age: 38 Year
  Sex: Male
  Weight: 90.7194 kg

DRUGS (3)
  1. MAXOLON [Suspect]
     Indication: GASTROENTERITIS
     Dosage: 10 MG   3 TIMES DAILY  PO
     Route: 048
     Dates: start: 20060203, end: 20060207
  2. MAXOLON [Suspect]
     Indication: NAUSEA
     Dosage: 10 MG   3 TIMES DAILY  PO
     Route: 048
     Dates: start: 20060203, end: 20060207
  3. STILNOCT      5 MG [Suspect]
     Indication: INSOMNIA
     Dosage: 5 MG   1 TABLET AT NIGHT   PO
     Route: 048
     Dates: start: 20060203, end: 20060207

REACTIONS (8)
  - ABNORMAL BEHAVIOUR [None]
  - AGITATION [None]
  - COMPLETED SUICIDE [None]
  - DISSOCIATION [None]
  - FEAR [None]
  - FEELING ABNORMAL [None]
  - MENTAL STATUS CHANGES [None]
  - PARANOIA [None]
